FAERS Safety Report 10906929 (Version 1)
Quarter: 2015Q1

REPORT INFORMATION
  Report Type: Spontaneous
  Country: DE (occurrence: DE)
  Receive Date: 20150312
  Receipt Date: 20150312
  Transmission Date: 20150721
  Serious: Yes (Hospitalization, Other)
  Sender: FDA-Public Use
  Company Number: DE-JNJFOC-20150303135

PATIENT
  Sex: Female

DRUGS (2)
  1. XARELTO [Suspect]
     Active Substance: RIVAROXABAN
     Indication: ATRIAL FIBRILLATION
     Route: 048
     Dates: start: 201212
  2. XARELTO [Suspect]
     Active Substance: RIVAROXABAN
     Indication: CEREBROVASCULAR ACCIDENT PROPHYLAXIS
     Route: 048
     Dates: start: 201212

REACTIONS (8)
  - Gastric haemorrhage [Unknown]
  - Dizziness [Unknown]
  - Headache [Unknown]
  - Melaena [Unknown]
  - Gastric mucosal lesion [Unknown]
  - Fatigue [Unknown]
  - Haematemesis [Unknown]
  - Restlessness [Unknown]

NARRATIVE: CASE EVENT DATE: 201412
